FAERS Safety Report 5832876-5 (Version None)
Quarter: 2008Q3

REPORT INFORMATION
  Report Type: 
  Country: None (occurrence: None)
  Receive Date: 20080804
  Receipt Date: 20080725
  Transmission Date: 20090109
  Serious: Yes (Death)
  Sender: FDA-Public Use
  Company Number: GB-PFIZER INC-2008063236

PATIENT
  Age: 58 Year
  Sex: Female
  Weight: 88.9 kg

DRUGS (1)
  1. CELECOXIB [Suspect]
     Indication: ARTHRALGIA
     Route: 048

REACTIONS (2)
  - DEEP VEIN THROMBOSIS [None]
  - PULMONARY EMBOLISM [None]
